FAERS Safety Report 15062019 (Version 1)
Quarter: 2018Q2

REPORT INFORMATION
  Report Type: Report from Study
  Country: US (occurrence: US)
  Receive Date: 20180625
  Receipt Date: 20180625
  Transmission Date: 20180711
  Serious: Yes (Hospitalization)
  Sender: FDA-Public Use
  Company Number: US-ACTELION-A-NJ2017-162939

PATIENT
  Age: 43 Year
  Sex: Male
  Weight: 131.52 kg

DRUGS (4)
  1. SILDENAFIL CITRATE. [Concomitant]
     Active Substance: SILDENAFIL CITRATE
  2. AMLODIPINE [Concomitant]
     Active Substance: AMLODIPINE BESYLATE
  3. OPSUMIT [Suspect]
     Active Substance: MACITENTAN
     Indication: PULMONARY HYPERTENSION
     Dosage: 10 MG, QD
     Route: 048
  4. REMODULIN [Concomitant]
     Active Substance: TREPROSTINIL

REACTIONS (8)
  - Catheter site pain [Unknown]
  - Catheter site erythema [Unknown]
  - Fatigue [Unknown]
  - Swelling [Unknown]
  - Pruritus [Unknown]
  - Catheter site swelling [Unknown]
  - Hospitalisation [Unknown]
  - Dyspnoea [Unknown]
